FAERS Safety Report 9637589 (Version 1)
Quarter: 2013Q4

REPORT INFORMATION
  Report Type: Spontaneous
  Country: FR (occurrence: FR)
  Receive Date: 20131022
  Receipt Date: 20131022
  Transmission Date: 20140711
  Serious: Yes (Other)
  Sender: FDA-Public Use
  Company Number: FR-JNJFOC-20131009850

PATIENT
  Sex: 0

DRUGS (1)
  1. INFLIXIMAB, RECOMBINANT [Suspect]
     Indication: PSORIASIS
     Route: 042
     Dates: start: 200606, end: 201109

REACTIONS (1)
  - Disseminated tuberculosis [Unknown]
